FAERS Safety Report 13639740 (Version 1)
Quarter: 2017Q2

REPORT INFORMATION
  Report Type: Spontaneous
  Country: US (occurrence: US)
  Receive Date: 20170609
  Receipt Date: 20170609
  Transmission Date: 20170830
  Serious: No
  Sender: FDA-Public Use
  Company Number: US-ROCHE-785503

PATIENT
  Age: 55 Year
  Sex: Female
  Weight: 71.2 kg

DRUGS (4)
  1. KLONOPIN [Suspect]
     Active Substance: CLONAZEPAM
     Dosage: DOSING FREQUENCY: QHS
     Route: 048
  2. CLONAZEPAM. [Suspect]
     Active Substance: CLONAZEPAM
     Indication: SPINAL CORD INJURY
     Route: 048
  3. CLONAZEPAM. [Suspect]
     Active Substance: CLONAZEPAM
     Dosage: DOSING FREQUENCY: QHS
     Route: 048
  4. KLONOPIN [Suspect]
     Active Substance: CLONAZEPAM
     Indication: SPINAL CORD INJURY
     Route: 048

REACTIONS (2)
  - Paraesthesia [Unknown]
  - Therapeutic response changed [Unknown]
